FAERS Safety Report 10618237 (Version 2)
Quarter: 2014Q4

REPORT INFORMATION
  Report Type: Not Available
  Country: GR (occurrence: GR)
  Receive Date: 20141202
  Receipt Date: 20141219
  Transmission Date: 20150529
  Serious: Yes (Hospitalization, Other)
  Sender: FDA-Public Use
  Company Number: GR-BEH-2014046694

PATIENT
  Age: 9 Month
  Sex: Male
  Weight: 8.9 kg

DRUGS (4)
  1. ASPIRIN. [Concomitant]
     Active Substance: ASPIRIN
     Route: 048
     Dates: start: 20141025, end: 20141031
  2. OMEPRAZOLE. [Concomitant]
     Active Substance: OMEPRAZOLE
     Route: 042
     Dates: start: 20141025, end: 20141031
  3. PRIVIGEN [Suspect]
     Active Substance: HUMAN IMMUNOGLOBULIN G
     Dosage: 18 G OVER 12 HOURS
     Route: 041
     Dates: start: 20141030, end: 20141030
  4. PRIVIGEN [Suspect]
     Active Substance: HUMAN IMMUNOGLOBULIN G
     Indication: KAWASAKI^S DISEASE
     Dosage: FIRST INJECTION
     Dates: start: 20141025, end: 20141025

REACTIONS (2)
  - Pallor [Recovered/Resolved]
  - Autoimmune haemolytic anaemia [Recovered/Resolved]

NARRATIVE: CASE EVENT DATE: 20141030
